FAERS Safety Report 5115247-9 (Version None)
Quarter: 2006Q3

REPORT INFORMATION
  Report Type: 
  Country: None (occurrence: None)
  Receive Date: 20060922
  Receipt Date: 20060912
  Transmission Date: 20061208
  Serious: Yes (Hospitalization)
  Sender: FDA-Public Use
  Company Number: 2006RR-03778

PATIENT
  Age: 76 Year
  Sex: Male

DRUGS (4)
  1. CLARITHROMYCIN [Suspect]
     Indication: HELICOBACTER GASTRITIS
  2. COLCHICUM JTL LIQ [Suspect]
     Indication: FAMILIAL MEDITERRANEAN FEVER
  3. AMOXICILLIN [Concomitant]
  4. OMEPRAZOLE [Concomitant]

REACTIONS (9)
  - ABDOMINAL PAIN [None]
  - ALOPECIA [None]
  - DEHYDRATION [None]
  - DIARRHOEA [None]
  - DRUG INTERACTION [None]
  - LIPASE INCREASED [None]
  - METABOLIC ACIDOSIS [None]
  - PANCYTOPENIA [None]
  - PYREXIA [None]
